FAERS Safety Report 6657879-2 (Version None)
Quarter: 2010Q1

REPORT INFORMATION
  Report Type: 
  Country: None (occurrence: None)
  Receive Date: 20100330
  Receipt Date: 20100322
  Transmission Date: 20100710
  Serious: Yes (Death)
  Sender: FDA-Public Use
  Company Number: US-ROCHE-692305

PATIENT
  Age: 17 Year
  Sex: Female

DRUGS (9)
  1. MYCOPHENOLATE MOFETIL [Suspect]
     Indication: SYSTEMIC LUPUS ERYTHEMATOSUS
     Route: 065
  2. HYDROXYCHLOROQUINE SULFATE [Concomitant]
  3. ASPIRIN [Concomitant]
  4. SULFAMETHOXAZOLE AND TRIMETHOPRIM [Concomitant]
     Indication: ABSCESS
  5. CEFTRIAXONE SODIUM [Concomitant]
  6. VANCOMYCIN [Concomitant]
  7. NAFCILLIN [Concomitant]
  8. CLINDAMYCIN [Concomitant]
  9. CEFOTAXIME [Concomitant]

REACTIONS (5)
  - CARDIAC ARREST [None]
  - MASTITIS [None]
  - NECROTISING FASCIITIS [None]
  - PULMONARY OEDEMA [None]
  - VENTRICULAR TACHYCARDIA [None]
